FAERS Safety Report 10182723 (Version 1)
Quarter: 2014Q2

REPORT INFORMATION
  Report Type: Spontaneous
  Country: US (occurrence: None)
  Receive Date: 20140519
  Receipt Date: 20140519
  Transmission Date: 20141212
  Serious: Yes (Hospitalization)
  Sender: FDA-Public Use
  Company Number: None

PATIENT
  Age: 62 Year
  Sex: Female
  Weight: 89.1 kg

DRUGS (2)
  1. SIMEPREVIR [Suspect]
     Indication: CHRONIC HEPATITIS C
     Dosage: APRIL 18 - PRESENT
     Route: 048
  2. SOFOSBUVIR [Suspect]
     Indication: CHRONIC HEPATITIS C
     Dosage: APRIL 18 - PRESENT
     Route: 048

REACTIONS (7)
  - Fatigue [None]
  - Malaise [None]
  - Palpitations [None]
  - Nausea [None]
  - Vomiting [None]
  - Pulmonary oedema [None]
  - Anxiety [None]
